FAERS Safety Report 20891665 (Version 1)
Quarter: 2022Q2

REPORT INFORMATION
  Report Type: Spontaneous
  Country: US (occurrence: US)
  Receive Date: 20220530
  Receipt Date: 20220530
  Transmission Date: 20220720
  Serious: Yes (Hospitalization)
  Sender: FDA-Public Use
  Company Number: US-CHIESI-2022CHF02591

PATIENT
  Age: 59 Year
  Sex: Male
  Weight: 64 kg

DRUGS (5)
  1. FERRIPROX [Suspect]
     Active Substance: DEFERIPRONE
     Indication: Haemochromatosis
     Dosage: 1000 MILLIGRAM, QD
     Route: 048
     Dates: start: 20180316
  2. FERRIPROX [Suspect]
     Active Substance: DEFERIPRONE
     Indication: Transfusion
  3. FERRIPROX [Suspect]
     Active Substance: DEFERIPRONE
     Indication: Myelodysplastic syndrome
  4. FERRIPROX [Suspect]
     Active Substance: DEFERIPRONE
     Indication: Off label use
  5. NOXAFIL [Concomitant]
     Active Substance: POSACONAZOLE
     Indication: Product used for unknown indication
     Dosage: UNK

REACTIONS (4)
  - Leukaemia [Not Recovered/Not Resolved]
  - Pain [Not Recovered/Not Resolved]
  - Off label use [Not Recovered/Not Resolved]
  - Off label use [Not Recovered/Not Resolved]

NARRATIVE: CASE EVENT DATE: 20180316
